FAERS Safety Report 11364203 (Version 2)
Quarter: 2015Q3

REPORT INFORMATION
  Report Type: Spontaneous
  Country: GB (occurrence: GB)
  Receive Date: 20150811
  Receipt Date: 20150825
  Transmission Date: 20151125
  Serious: Yes (Death, Other)
  Sender: FDA-Public Use
  Company Number: PHFR2015GB005952

PATIENT
  Sex: Male

DRUGS (1)
  1. SIGNIFOR [Suspect]
     Active Substance: PASIREOTIDE
     Indication: NEUROENDOCRINE TUMOUR
     Route: 065

REACTIONS (3)
  - General physical health deterioration [Unknown]
  - Malignant neoplasm progression [Fatal]
  - Diarrhoea [Unknown]
